FAERS Safety Report 7807042-4 (Version None)
Quarter: 2011Q4

REPORT INFORMATION
  Report Type: 
  Country: None (occurrence: None)
  Receive Date: 20111011
  Receipt Date: 20111005
  Transmission Date: 20120403
  Serious: Yes (Hospitalization, Other)
  Sender: FDA-Public Use
  Company Number: US-AMGEN-USASP2011051486

PATIENT
  Age: 35 Year
  Sex: Female

DRUGS (5)
  1. DESOGESTREL AND ETHINYL ESTRADIOL [Suspect]
     Indication: CONTRACEPTION
     Dates: end: 20110101
  2. CELEBREX [Concomitant]
  3. ENBREL [Suspect]
     Dosage: 50 MG, QWK
  4. ENBREL [Suspect]
     Indication: ANKYLOSING SPONDYLITIS
     Dosage: 50 MG, QWK
  5. VICODIN [Concomitant]

REACTIONS (3)
  - OEDEMA PERIPHERAL [None]
  - THROMBOSIS [None]
  - CEREBROVASCULAR ACCIDENT [None]
